FAERS Safety Report 18846468 (Version 1)
Quarter: 2021Q1

REPORT INFORMATION
  Report Type: Report from Study
  Country: US (occurrence: US)
  Receive Date: 20210203
  Receipt Date: 20210203
  Transmission Date: 20210419
  Serious: No
  Sender: FDA-Public Use
  Company Number: US-EXELIXIS-CABO-20031395

PATIENT
  Sex: Female

DRUGS (5)
  1. BYSTOLIC [Concomitant]
     Active Substance: NEBIVOLOL HYDROCHLORIDE
  2. OLMESARTAN MEDOXOMIL. [Concomitant]
     Active Substance: OLMESARTAN MEDOXOMIL
  3. FUROSEMIDE. [Concomitant]
     Active Substance: FUROSEMIDE
     Dosage: UNK
  4. DOXAZOSIN M [Concomitant]
     Dosage: UNK
  5. CABOMETYX [Suspect]
     Active Substance: CABOZANTINIB S-MALATE
     Indication: RENAL CANCER

REACTIONS (1)
  - Abdominal discomfort [Unknown]
